FAERS Safety Report 7490395-7 (Version None)
Quarter: 2011Q2

REPORT INFORMATION
  Report Type: 
  Country: None (occurrence: None)
  Receive Date: 20110519
  Receipt Date: 20110418
  Transmission Date: 20111010
  Serious: Yes (Hospitalization, Other)
  Sender: FDA-Public Use
  Company Number: US-BAYER-201039818NA

PATIENT
  Age: 18 Year
  Sex: Female
  Weight: 43.084 kg

DRUGS (3)
  1. ANTIBIOTICS [Concomitant]
  2. YAZ [Suspect]
     Indication: PREMENSTRUAL SYNDROME
     Dosage: UNK
     Dates: start: 20080729, end: 20090109
  3. NSAID'S [Concomitant]

REACTIONS (4)
  - GALLBLADDER NON-FUNCTIONING [None]
  - PANCREATITIS [None]
  - NAUSEA [None]
  - CHEST PAIN [None]
